FAERS Safety Report 24872562 (Version 1)
Quarter: 2025Q1

REPORT INFORMATION
  Report Type: Report from Study
  Country: JP (occurrence: JP)
  Receive Date: 20250122
  Receipt Date: 20250122
  Transmission Date: 20250409
  Serious: Yes (Other)
  Sender: ROCHE
  Company Number: JP-ROCHE-10000181759

PATIENT

DRUGS (6)
  1. ATEZOLIZUMAB [Suspect]
     Active Substance: ATEZOLIZUMAB
     Indication: Neoplasm malignant
     Route: 065
  2. IPILIMUMAB [Suspect]
     Active Substance: IPILIMUMAB
     Indication: Neoplasm malignant
     Route: 065
  3. AVELUMAB [Suspect]
     Active Substance: AVELUMAB
     Indication: Neoplasm malignant
     Route: 065
  4. PEMBROLIZUMAB [Suspect]
     Active Substance: PEMBROLIZUMAB
     Indication: Neoplasm malignant
     Route: 065
  5. NIVOLUMAB [Suspect]
     Active Substance: NIVOLUMAB
     Indication: Neoplasm malignant
     Route: 065
  6. DURVALUMAB [Suspect]
     Active Substance: DURVALUMAB
     Indication: Neoplasm malignant
     Route: 065

REACTIONS (17)
  - Immune system disorder [Unknown]
  - Type 1 diabetes mellitus [Unknown]
  - Interstitial lung disease [Unknown]
  - Biliary tract disorder [Unknown]
  - Enterocolitis [Unknown]
  - Skin disorder [Unknown]
  - Renal tubular disorder [Unknown]
  - Myelosuppression [Unknown]
  - Neuropathy peripheral [Unknown]
  - Rhabdomyolysis [Unknown]
  - Liver disorder [Unknown]
  - Autoimmune pancreatitis [Unknown]
  - Nephrotic syndrome [Unknown]
  - Uveitis [Unknown]
  - Herpes ophthalmic [Unknown]
  - Hepatitis [Unknown]
  - Urinary tract disorder [Unknown]
